FAERS Safety Report 14182487 (Version 5)
Quarter: 2018Q1

REPORT INFORMATION
  Report Type: Spontaneous
  Country: US (occurrence: US)
  Receive Date: 20171113
  Receipt Date: 20180205
  Transmission Date: 20180508
  Serious: Yes (Hospitalization)
  Sender: FDA-Public Use
  Company Number: US-PFIZER INC-2017481430

PATIENT
  Age: 74 Year
  Sex: Female

DRUGS (5)
  1. ATROPINE SULFATE/DIPHENOXYLATE HYDROCHLORIDE [Suspect]
     Active Substance: ATROPINE SULFATE\DIPHENOXYLATE HYDROCHLORIDE
     Indication: COLITIS MICROSCOPIC
     Dosage: UNK
  2. UCERIS [Concomitant]
     Active Substance: BUDESONIDE
     Dosage: 1 DF, DAILY
  3. ATROPINE SULFATE/DIPHENOXYLATE HYDROCHLORIDE [Suspect]
     Active Substance: ATROPINE SULFATE\DIPHENOXYLATE HYDROCHLORIDE
     Dosage: UNK
     Dates: start: 20170901, end: 201710
  4. APRISO [Concomitant]
     Active Substance: MESALAMINE
     Dosage: 2 DF, DAILY
  5. ATROPINE SULFATE/DIPHENOXYLATE HYDROCHLORIDE [Suspect]
     Active Substance: ATROPINE SULFATE\DIPHENOXYLATE HYDROCHLORIDE
     Dosage: 4/2.5 MG, 4X/DAY [DIPHENOXYLATE HCL/ATROPINE SULFATE: 2.5/4MG]
     Dates: start: 20170801, end: 201710

REACTIONS (3)
  - Product use issue [Unknown]
  - Drug ineffective for unapproved indication [Recovering/Resolving]
  - Product substitution issue [None]

NARRATIVE: CASE EVENT DATE: 20170801
